FAERS Safety Report 9418585 (Version 4)
Quarter: 2014Q1

REPORT INFORMATION
  Report Type: Spontaneous
  Country: IT (occurrence: IT)
  Receive Date: 20130725
  Receipt Date: 20140328
  Transmission Date: 20141002
  Serious: Yes (Hospitalization)
  Sender: FDA-Public Use
  Company Number: IT-ROCHE-1252238

PATIENT
  Age: 86 Year
  Sex: Female

DRUGS (4)
  1. AVASTIN [Suspect]
     Indication: AGE-RELATED MACULAR DEGENERATION
     Route: 031
     Dates: end: 20120808
  2. AVASTIN [Suspect]
     Indication: OFF LABEL USE
  3. LUCENTIS [Suspect]
     Indication: AGE-RELATED MACULAR DEGENERATION
     Dosage: LAST DOSE PRIOR TO SAE: 20/FEB/2013
     Route: 031
     Dates: start: 20121212, end: 20130220
  4. DIAMICRON [Concomitant]

REACTIONS (2)
  - Atrioventricular block second degree [Recovering/Resolving]
  - Dyspnoea [Recovering/Resolving]
